FAERS Safety Report 17014017 (Version 1)
Quarter: 2019Q4

REPORT INFORMATION
  Report Type: Spontaneous
  Country: US (occurrence: US)
  Receive Date: 20191111
  Receipt Date: 20191111
  Transmission Date: 20200122
  Serious: No
  Sender: FDA-Public Use
  Company Number: US-JNJFOC-20191104190

PATIENT
  Sex: Female

DRUGS (1)
  1. WOMENS ROGAINE UNSCENTED [Suspect]
     Active Substance: MINOXIDIL
     Indication: ALOPECIA
     Route: 061

REACTIONS (7)
  - Off label use [Unknown]
  - Drug hypersensitivity [Unknown]
  - Dandruff [Unknown]
  - Therapeutic response unexpected [Unknown]
  - Product residue present [Unknown]
  - Product use in unapproved indication [Unknown]
  - Application site dryness [Unknown]

NARRATIVE: CASE EVENT DATE: 2019
